FAERS Safety Report 14597534 (Version 1)
Quarter: 2018Q1

REPORT INFORMATION
  Report Type: Report from Study
  Country: GB (occurrence: GB)
  Receive Date: 20180305
  Receipt Date: 20180305
  Transmission Date: 20180509
  Serious: Yes (Hospitalization, Other)
  Sender: FDA-Public Use
  Company Number: GB-AMGEN-GBRCT2018028453

PATIENT
  Age: 55 Year
  Sex: Female
  Weight: 123.4 kg

DRUGS (5)
  1. CARFILZOMIB [Suspect]
     Active Substance: CARFILZOMIB
     Indication: PLASMA CELL MYELOMA
     Dosage: 120 MG, PER CHEMO REGIM
     Route: 042
     Dates: start: 20161012
  2. ACICLOVIR [Concomitant]
     Active Substance: ACYCLOVIR
     Indication: PROPHYLACTIC CHEMOTHERAPY
     Dosage: 400 MG, Q12H
     Route: 048
     Dates: start: 20161012
  3. BISOPROLOL [Concomitant]
     Active Substance: BISOPROLOL
     Indication: BLOOD PRESSURE MEASUREMENT
     Dosage: 2.5 MG, QD
     Route: 048
     Dates: start: 201706
  4. LANSOPRAZOL [Concomitant]
     Active Substance: LANSOPRAZOLE
     Indication: PROPHYLACTIC CHEMOTHERAPY
     Dosage: 30 MG, QD
     Route: 048
     Dates: start: 20161012
  5. DEXAMETHASONE. [Concomitant]
     Active Substance: DEXAMETHASONE
     Indication: PLASMA CELL MYELOMA
     Dosage: 10 MG, EVERY 3.5 DAYS
     Route: 048
     Dates: start: 20161012

REACTIONS (1)
  - Diverticulitis [Recovering/Resolving]

NARRATIVE: CASE EVENT DATE: 20180211
